FAERS Safety Report 12484768 (Version 1)
Quarter: 2016Q2

REPORT INFORMATION
  Report Type: Spontaneous
  Country: US (occurrence: None)
  Receive Date: 20160620
  Receipt Date: 20160620
  Transmission Date: 20160815
  Serious: Yes (Other)
  Sender: FDA-Public Use
  Company Number: None

PATIENT
  Age: 35 Year
  Sex: Female
  Weight: 63.5 kg

DRUGS (5)
  1. ZOLOFT [Suspect]
     Active Substance: SERTRALINE HYDROCHLORIDE
     Indication: DEPRESSION
     Dosage: IN THE MORNING TAKEN BY MOUTH
     Route: 048
     Dates: start: 20160420, end: 20160615
  2. CLARITIN [Concomitant]
     Active Substance: LORATADINE
  3. WOMENS ONCE DAILY MULTI-VITAMIN [Concomitant]
  4. BIOTIN [Concomitant]
     Active Substance: BIOTIN
  5. XANAX [Concomitant]
     Active Substance: ALPRAZOLAM

REACTIONS (16)
  - Suicidal ideation [None]
  - Depression [None]
  - Fall [None]
  - Dizziness [None]
  - Hypoaesthesia [None]
  - Apparent death [None]
  - Hypokinesia [None]
  - Headache [None]
  - Insomnia [None]
  - Indifference [None]
  - Alopecia [None]
  - Feeling abnormal [None]
  - Activities of daily living impaired [None]
  - Panic attack [None]
  - Nausea [None]
  - Tremor [None]

NARRATIVE: CASE EVENT DATE: 20160607
